FAERS Safety Report 6765874-8 (Version None)
Quarter: 2010Q2

REPORT INFORMATION
  Report Type: 
  Country: None (occurrence: None)
  Receive Date: 20100611
  Receipt Date: 20100604
  Transmission Date: 20101027
  Serious: Yes (Disabling)
  Sender: FDA-Public Use
  Company Number: GB-ROCHE-707906

PATIENT
  Age: 66 Year
  Sex: Female

DRUGS (7)
  1. BONIVA [Suspect]
     Indication: OSTEOPOROSIS
     Route: 048
     Dates: start: 20071101, end: 20090205
  2. ASPIRIN [Concomitant]
  3. AMLODIPINE [Concomitant]
  4. ADCAL D3 [Concomitant]
  5. BETAHISTINE [Concomitant]
     Route: 048
  6. PROPAFENONE HCL [Concomitant]
  7. SIMVASTATIN [Concomitant]
     Route: 048

REACTIONS (2)
  - OSTEOMYELITIS [None]
  - OSTEONECROSIS OF JAW [None]
